FAERS Safety Report 5748599-7 (Version None)
Quarter: 2008Q2

REPORT INFORMATION
  Report Type: 
  Country: None (occurrence: None)
  Receive Date: 20080523
  Receipt Date: 20080513
  Transmission Date: 20081010
  Serious: Yes (Other)
  Sender: FDA-Public Use
  Company Number: US-PFIZER INC-2008043023

PATIENT
  Sex: Male
  Weight: 95.454 kg

DRUGS (6)
  1. CHANTIX [Suspect]
     Indication: SMOKING CESSATION THERAPY
  2. ACTOS [Concomitant]
     Indication: DIABETES MELLITUS
  3. DIABETA [Concomitant]
     Indication: DIABETES MELLITUS
  4. BENICAR [Concomitant]
     Indication: HYPERTENSION
  5. ACETYLSALICYLIC ACID SRT [Concomitant]
  6. ACIPHEX [Concomitant]
     Indication: GASTRITIS

REACTIONS (1)
  - EPISTAXIS [None]
